FAERS Safety Report 11838289 (Version 1)
Quarter: 2015Q4

REPORT INFORMATION
  Report Type: Spontaneous
  Country: GB (occurrence: GB)
  Receive Date: 20151215
  Receipt Date: 20151215
  Transmission Date: 20160305
  Serious: Yes (Other)
  Sender: FDA-Public Use
  Company Number: GB-TEVA-615859ACC

PATIENT
  Age: 68 Year
  Sex: Female
  Weight: 58.06 kg

DRUGS (1)
  1. TRIMETHOPRIM. [Suspect]
     Active Substance: TRIMETHOPRIM
     Dosage: 400 MILLIGRAM DAILY;
     Route: 048
     Dates: start: 20151124, end: 20151126

REACTIONS (12)
  - Flatulence [Unknown]
  - Asthenia [Unknown]
  - Groin pain [Unknown]
  - Syncope [Unknown]
  - Faeces hard [Unknown]
  - Proctalgia [Unknown]
  - Malaise [Unknown]
  - Feeling cold [Unknown]
  - Diarrhoea [Unknown]
  - Back pain [Unknown]
  - Nausea [Unknown]
  - Abdominal pain [Unknown]

NARRATIVE: CASE EVENT DATE: 20151125
